FAERS Safety Report 9898627 (Version 2)
Quarter: 2014Q1

REPORT INFORMATION
  Report Type: Spontaneous
  Country: US (occurrence: US)
  Receive Date: 20140214
  Receipt Date: 20140214
  Transmission Date: 20141002
  Serious: No
  Sender: FDA-Public Use
  Company Number: US-GILEAD-2011-0043556

PATIENT
  Sex: Female

DRUGS (7)
  1. LETAIRIS [Suspect]
     Indication: PULMONARY HYPERTENSION
     Route: 048
     Dates: start: 20100608
  2. LETAIRIS [Suspect]
     Indication: SLEEP APNOEA SYNDROME
  3. LETAIRIS [Suspect]
     Indication: CARDIOMYOPATHY
  4. LETAIRIS [Suspect]
     Indication: AORTIC STENOSIS
  5. NITROGLYCERINE [Concomitant]
  6. COREG [Concomitant]
  7. LASIX [Concomitant]

REACTIONS (3)
  - Dizziness [Unknown]
  - Oxygen saturation decreased [Unknown]
  - Headache [Unknown]
